FAERS Safety Report 20259272 (Version 1)
Quarter: 2021Q4

REPORT INFORMATION
  Report Type: Spontaneous
  Country: TR (occurrence: TR)
  Receive Date: 20211230
  Receipt Date: 20211230
  Transmission Date: 20220304
  Serious: No
  Sender: FDA-Public Use
  Company Number: TR-LUPIN PHARMACEUTICALS INC.-2021-25718

PATIENT
  Age: 26 Year
  Sex: Male

DRUGS (7)
  1. HYDROXYCHLOROQUINE [Suspect]
     Active Substance: HYDROXYCHLOROQUINE
     Indication: COVID-19
     Dosage: 200 MILLIGRAM, QD
     Route: 065
  2. PIPERACILLIN SODIUM\TAZOBACTAM SODIUM [Suspect]
     Active Substance: PIPERACILLIN SODIUM\TAZOBACTAM SODIUM
     Indication: COVID-19
     Dosage: 4.5 GRAM, TID
     Route: 065
  3. COVID-19 CONVALESCENT PLASMA [Suspect]
     Active Substance: COVID-19 CONVALESCENT PLASMA
     Indication: COVID-19
     Dosage: 200 MILLILITER, QOD (RECEIVED TWO DOSES EVERY OTHER DAY)
     Route: 042
  4. FAVIPIRAVIR [Suspect]
     Active Substance: FAVIPIRAVIR
     Indication: COVID-19
     Dosage: 1600 MILLIGRAM (LOADING DOSE)
     Route: 065
  5. FAVIPIRAVIR [Suspect]
     Active Substance: FAVIPIRAVIR
     Dosage: 600 MILLIGRAM (MAINTENANCE DOSES)
     Route: 065
  6. Immunoglobulin [Concomitant]
     Indication: Hypogammaglobulinaemia
     Dosage: 0.4 GRAM PER KILOGRAM
     Route: 058
  7. ENOXAPARIN [Concomitant]
     Active Substance: ENOXAPARIN
     Indication: Symptomatic treatment
     Dosage: 40 MG, QD
     Route: 065

REACTIONS (1)
  - Off label use [Unknown]
